FAERS Safety Report 22595239 (Version 1)
Quarter: 2023Q2

REPORT INFORMATION
  Report Type: Spontaneous
  Country: US (occurrence: None)
  Receive Date: 20230612
  Receipt Date: 20230612
  Transmission Date: 20230722
  Serious: Yes (Hospitalization)
  Sender: FDA-Public Use
  Company Number: None

PATIENT
  Sex: Female

DRUGS (19)
  1. HUMIRA [Suspect]
     Active Substance: ADALIMUMAB
     Indication: Crohn^s disease
     Dosage: 40 MG/0.4ML SUBCUTANEOUS?INJECT 1 PEN UNDER THE SKIN (SUBCUTANEOUS INJECTION) EVERY WEEK?
     Route: 058
     Dates: start: 20220326
  2. ALBUTEROL AER HFA [Concomitant]
  3. AZITHROMYCIN [Concomitant]
     Active Substance: AZITHROMYCIN
  4. BENZONATATE [Concomitant]
     Active Substance: BENZONATATE
  5. BENZOYL PER LIQ WASH [Concomitant]
  6. BETASEPT LIQ [Concomitant]
  7. BUT/APAP/CAF [Concomitant]
  8. CYCLOBENZAPR [Concomitant]
  9. DIAZEPAM [Concomitant]
     Active Substance: DIAZEPAM
  10. DICYCLOMINE [Concomitant]
     Active Substance: DICYCLOMINE HYDROCHLORIDE
  11. GABAPENTIN [Concomitant]
     Active Substance: GABAPENTIN
  12. MYORISAN [Concomitant]
     Active Substance: ISOTRETINOIN
  13. ONDANSETRON [Concomitant]
     Active Substance: ONDANSETRON
  14. OXYCODONE AND ACETAMINOPHEN [Concomitant]
     Active Substance: ACETAMINOPHEN\OXYCODONE HYDROCHLORIDE
  15. PREDNISONE [Concomitant]
     Active Substance: PREDNISONE
  16. PROMETHAZINE SYP DM [Concomitant]
  17. TOBRAMYCIN SOL OP [Concomitant]
  18. TRAMADOL HCL [Concomitant]
  19. TYLENOL [Concomitant]
     Active Substance: ACETAMINOPHEN

REACTIONS (1)
  - Hidradenitis [None]
